FAERS Safety Report 20694367 (Version 2)
Quarter: 2022Q2

REPORT INFORMATION
  Report Type: Spontaneous
  Country: US (occurrence: US)
  Receive Date: 20220411
  Receipt Date: 20220503
  Transmission Date: 20220721
  Serious: Yes (Other)
  Sender: FDA-Public Use
  Company Number: US-CELLTRION INC.-2022US004315

PATIENT

DRUGS (8)
  1. TRUXIMA [Suspect]
     Active Substance: RITUXIMAB-ABBS
     Indication: Mantle cell lymphoma
     Dosage: 700 MG PER 100 ML PER HOUR IV
     Route: 042
     Dates: start: 20220114
  2. TRUXIMA [Suspect]
     Active Substance: RITUXIMAB-ABBS
     Dosage: 700 MG PER 100 ML PER HOUR IV
     Route: 042
     Dates: start: 20220128
  3. TRUXIMA [Suspect]
     Active Substance: RITUXIMAB-ABBS
     Dosage: 700 MG PER 100 ML PER HOUR IV
     Route: 042
     Dates: start: 20220204
  4. TRUXIMA [Suspect]
     Active Substance: RITUXIMAB-ABBS
     Dosage: 700 MG PER 100 ML PER HOUR IV
     Route: 042
     Dates: start: 20220311
  5. SODIUM CHLORIDE [Suspect]
     Active Substance: SODIUM CHLORIDE
     Indication: Product used for unknown indication
     Dosage: 700 MG PER 100 ML PER HOUR IV
     Route: 042
     Dates: start: 20220114
  6. SODIUM CHLORIDE [Suspect]
     Active Substance: SODIUM CHLORIDE
     Dosage: 700 MG PER 100 ML PER HOUR IV
     Route: 042
     Dates: start: 20220128
  7. SODIUM CHLORIDE [Suspect]
     Active Substance: SODIUM CHLORIDE
     Dosage: 700 MG PER 100 ML PER HOUR IV
     Route: 042
     Dates: start: 20220204
  8. SODIUM CHLORIDE [Suspect]
     Active Substance: SODIUM CHLORIDE
     Dosage: 700 MG PER 100 ML PER HOUR IV
     Route: 042
     Dates: start: 20220311

REACTIONS (5)
  - Mantle cell lymphoma [Unknown]
  - Frequent bowel movements [Unknown]
  - Ocular hyperaemia [Unknown]
  - Diarrhoea [Unknown]
  - Off label use [Unknown]

NARRATIVE: CASE EVENT DATE: 20220114
